FAERS Safety Report 5541592-9 (Version None)
Quarter: 2007Q4

REPORT INFORMATION
  Report Type: 
  Country: None (occurrence: None)
  Receive Date: 20071210
  Receipt Date: 20071203
  Transmission Date: 20080405
  Serious: Yes (Hospitalization)
  Sender: FDA-Public Use
  Company Number: FR-AVENTIS-200721095GDDC

PATIENT
  Age: 86 Year
  Sex: Male

DRUGS (2)
  1. MINIRIN [Suspect]
     Route: 042
     Dates: start: 20071025, end: 20071025
  2. HEPARIN CALCIUM [Concomitant]
     Route: 058
     Dates: start: 20071001

REACTIONS (1)
  - PULMONARY EMBOLISM [None]
